FAERS Safety Report 17376707 (Version 1)
Quarter: 2020Q1

REPORT INFORMATION
  Report Type: Spontaneous
  Country: US (occurrence: US)
  Receive Date: 20200205
  Receipt Date: 20200205
  Transmission Date: 20200409
  Serious: Yes (Disabling)
  Sender: FDA-Public Use
  Company Number: None

PATIENT
  Age: 69 Year
  Sex: Female
  Weight: 66.6 kg

DRUGS (1)
  1. DESVENLAFAXINE. [Suspect]
     Active Substance: DESVENLAFAXINE
     Indication: DEPRESSION
     Route: 048
     Dates: start: 20200101, end: 20200128

REACTIONS (14)
  - Nausea [None]
  - Headache [None]
  - Hot flush [None]
  - Pain [None]
  - Vertigo [None]
  - Dizziness [None]
  - Insomnia [None]
  - Nightmare [None]
  - Balance disorder [None]
  - Chills [None]
  - Arthralgia [None]
  - Pyrexia [None]
  - Neuropathy peripheral [None]
  - Diarrhoea [None]

NARRATIVE: CASE EVENT DATE: 20200101
